FAERS Safety Report 16028986 (Version 1)
Quarter: 2019Q1

REPORT INFORMATION
  Report Type: Report from Study
  Country: JP (occurrence: JP)
  Receive Date: 20190304
  Receipt Date: 20190304
  Transmission Date: 20190418
  Serious: Yes (Hospitalization)
  Sender: FDA-Public Use
  Company Number: JP-ASTELLAS-2017JP016541

PATIENT
  Age: 79 Year
  Sex: Male
  Weight: 58 kg

DRUGS (19)
  1. ENZALUTAMIDE [Suspect]
     Active Substance: ENZALUTAMIDE
     Indication: HORMONE-REFRACTORY PROSTATE CANCER
     Route: 048
     Dates: start: 20170706
  2. AZUNOL                             /00317302/ [Concomitant]
     Indication: INFECTION PROPHYLAXIS
     Dosage: SUFFICIENT QUANTITY, THRICE DAILY
     Route: 049
     Dates: start: 20180109
  3. BIOFERMIN T [Concomitant]
     Indication: PROPHYLAXIS
     Dosage: UNK UNK, AS NEEDED
     Route: 048
  4. OPTIRAY [Concomitant]
     Active Substance: IOVERSOL
     Dosage: UNK UNK, UNKNOWN FREQ.
     Route: 042
     Dates: start: 20171219, end: 20171219
  5. OPTIRAY [Concomitant]
     Active Substance: IOVERSOL
     Dosage: UNK UNK, UNKNOWN FREQ.
     Route: 042
     Dates: start: 20180823, end: 20180823
  6. LOSARTAN POTASSIUM. [Concomitant]
     Active Substance: LOSARTAN POTASSIUM
     Indication: HYPERTENSION
     Route: 048
     Dates: start: 20180713
  7. ALINAMIN                           /00274801/ [Concomitant]
     Indication: PROPHYLAXIS
     Dosage: UNK UNK, AS NEEDED
     Route: 048
  8. MAGMITT [Concomitant]
     Active Substance: MAGNESIUM OXIDE
     Indication: CONSTIPATION
     Dosage: UNK UNK, AS NEEDED
     Route: 048
     Dates: start: 20170621
  9. OPTIRAY [Concomitant]
     Active Substance: IOVERSOL
     Dosage: UNK UNK, UNKNOWN FREQ.
     Route: 042
     Dates: start: 20180301, end: 20180301
  10. LEUPLIN [Suspect]
     Active Substance: LEUPROLIDE ACETATE
     Indication: HORMONE-REFRACTORY PROSTATE CANCER
     Dosage: UNK UNK, ONCE EVERY 3 MONTHS
     Route: 058
     Dates: start: 20160309
  11. CABAGIN U [Concomitant]
     Indication: PROPHYLAXIS
     Route: 048
  12. OPTIRAY [Concomitant]
     Active Substance: IOVERSOL
     Dosage: UNK UNK, UNKNOWN FREQ.
     Route: 042
     Dates: start: 20180531, end: 20180531
  13. GURONSAN                           /02053404/ [Concomitant]
     Indication: PROPHYLAXIS
     Dosage: UNK UNK, AS NEEDED
     Route: 048
  14. OLMETEC [Concomitant]
     Active Substance: OLMESARTAN MEDOXOMIL
     Indication: HYPERTENSION
     Dosage: UNK UNK, UNKNOWN FREQ.
     Route: 048
  15. OPTIRAY [Concomitant]
     Active Substance: IOVERSOL
     Dosage: UNK UNK, UNKNOWN FREQ.
     Route: 042
     Dates: start: 20170926, end: 20170926
  16. TECHNETIUM TC 99M [Concomitant]
     Active Substance: TECHNETIUM TC-99M
     Dosage: UNK UNK, UNKNOWN FREQ.
     Route: 042
     Dates: start: 20170815, end: 20170815
  17. OPTIRAY [Concomitant]
     Active Substance: IOVERSOL
     Indication: COMPUTERISED TOMOGRAM
     Dosage: UNK UNK, UNKNOWN FREQ.
     Route: 042
     Dates: start: 20170627, end: 20170627
  18. OPTIRAY [Concomitant]
     Active Substance: IOVERSOL
     Dosage: UNK UNK, UNKNOWN FREQ.
     Route: 042
     Dates: start: 20181120, end: 20181120
  19. TECHNETIUM TC 99M [Concomitant]
     Active Substance: TECHNETIUM TC-99M
     Indication: BONE SCAN
     Dosage: UNK UNK, UNKNOWN FREQ.
     Route: 042
     Dates: start: 20170627, end: 20170627

REACTIONS (2)
  - Fatigue [Recovered/Resolved]
  - Carotid artery stenosis [Not Recovered/Not Resolved]

NARRATIVE: CASE EVENT DATE: 20170717
